FAERS Safety Report 8857189 (Version 1)
Quarter: 2012Q4

REPORT INFORMATION
  Report Type: 
  Country: SE (occurrence: SE)
  Receive Date: 20121024
  Receipt Date: 20121024
  Transmission Date: 20130627
  Serious: Yes (Other)
  Sender: FDA-Public Use
  Company Number: SE-WATSON-2012-17997

PATIENT
  Age: 72 Year
  Sex: Male

DRUGS (1)
  1. DICLOFENAC (UNKNOWN) [Suspect]
     Indication: PRODUCT USED FOR UNKNOWN INDICATION
     Dosage: UNK
     Route: 065

REACTIONS (6)
  - Atrial fibrillation [Unknown]
  - Cardiac failure [Unknown]
  - Hypotension [Unknown]
  - Rash maculo-papular [Unknown]
  - Transaminases increased [Unknown]
  - Tubulointerstitial nephritis [Unknown]
